FAERS Safety Report 15596139 (Version 1)
Quarter: 2018Q4

REPORT INFORMATION
  Report Type: Spontaneous
  Country: US (occurrence: US)
  Receive Date: 20181107
  Receipt Date: 20181107
  Transmission Date: 20190205
  Serious: No
  Sender: FDA-Public Use
  Company Number: US-SA-2018SA304279

PATIENT
  Sex: Female

DRUGS (1)
  1. PLAVIX [Suspect]
     Active Substance: CLOPIDOGREL BISULFATE
     Indication: STENT PLACEMENT
     Dosage: UNK UNK, UNK
     Route: 065

REACTIONS (4)
  - Vision blurred [Unknown]
  - Dyspnoea [Unknown]
  - Self-medication [Unknown]
  - Product design issue [Unknown]
